FAERS Safety Report 20126827 (Version 3)
Quarter: 2021Q4

REPORT INFORMATION
  Report Type: Report from Study
  Country: BR (occurrence: BR)
  Receive Date: 20211129
  Receipt Date: 20211217
  Transmission Date: 20220303
  Serious: Yes (Other)
  Sender: FDA-Public Use
  Company Number: BR-TAKEDA-2020TUS035966

PATIENT
  Sex: Female

DRUGS (6)
  1. VEDOLIZUMAB [Suspect]
     Active Substance: VEDOLIZUMAB
     Indication: Colitis ulcerative
     Dosage: 300 MILLIGRAM
     Route: 042
     Dates: start: 20190131
  2. MESALAMINE [Suspect]
     Active Substance: MESALAMINE
     Indication: Colitis
     Dosage: UNK
     Route: 065
     Dates: start: 20190131
  3. AMITIZA [Suspect]
     Active Substance: LUBIPROSTONE
     Indication: Constipation
     Dosage: UNK
     Route: 065
     Dates: start: 20190131
  4. IRON POLYMALTOSE [Suspect]
     Active Substance: IRON POLYMALTOSE
     Indication: Anaemia
     Dosage: UNK
     Route: 065
  5. IRON POLYMALTOSE [Suspect]
     Active Substance: IRON POLYMALTOSE
     Indication: Anaemia
     Dosage: 100 MILLIGRAM
     Route: 030
  6. IMURAN [Concomitant]
     Active Substance: AZATHIOPRINE
     Indication: Inflammation
     Dosage: UNK

REACTIONS (9)
  - SARS-CoV-1 test positive [Unknown]
  - Fibromyalgia [Unknown]
  - Anaemia [Unknown]
  - Rhinitis [Recovering/Resolving]
  - Nasal obstruction [Recovered/Resolved]
  - Cough [Recovered/Resolved]
  - Product availability issue [Unknown]
  - Product dose omission issue [Unknown]
  - Off label use [Unknown]

NARRATIVE: CASE EVENT DATE: 20200101
